FAERS Safety Report 14186638 (Version 5)
Quarter: 2018Q1

REPORT INFORMATION
  Report Type: Spontaneous
  Country: IT (occurrence: IT)
  Receive Date: 20171114
  Receipt Date: 20180208
  Transmission Date: 20180508
  Serious: Yes (Other)
  Sender: FDA-Public Use
  Company Number: IT-VIIV HEALTHCARE LIMITED-IT2017GSK173670

PATIENT
  Age: 27 Year
  Sex: Female

DRUGS (14)
  1. RALTEGRAVIR. [Suspect]
     Active Substance: RALTEGRAVIR
     Indication: ANTIRETROVIRAL THERAPY
     Dosage: UNK
     Route: 065
  2. TRUVADA [Suspect]
     Active Substance: EMTRICITABINE\TENOFOVIR DISOPROXIL FUMARATE
     Indication: HIV INFECTION
     Dosage: UNK
     Route: 065
  3. LAMIVUDINE AND ZIDOVUDINE [Suspect]
     Active Substance: LAMIVUDINE\ZIDOVUDINE
     Indication: HEPATITIS B
  4. TENOFOVIR DISOPROXIL FUMARATE. [Suspect]
     Active Substance: TENOFOVIR DISOPROXIL FUMARATE
     Indication: ANTIRETROVIRAL THERAPY
     Dosage: UNK
     Route: 065
  5. DARUNAVIR [Concomitant]
     Active Substance: DARUNAVIR
     Dosage: 600 MG, BID
     Route: 065
  6. LAMIVUDINE. [Concomitant]
     Active Substance: LAMIVUDINE
     Dosage: 100 MG, QD
     Route: 065
  7. TENOFOVIR DISOPROXIL FUMARATE. [Suspect]
     Active Substance: TENOFOVIR DISOPROXIL FUMARATE
     Indication: HEPATITIS B
  8. EFAVIRENZ. [Suspect]
     Active Substance: EFAVIRENZ
     Indication: HIV INFECTION
     Dosage: 800 MG, QD
     Route: 065
  9. RITONAVIR. [Concomitant]
     Active Substance: RITONAVIR
     Dosage: 100 MG, BID
     Route: 065
  10. LAMIVUDINE AND ZIDOVUDINE [Suspect]
     Active Substance: LAMIVUDINE\ZIDOVUDINE
     Indication: HIV INFECTION
     Dosage: UNK
     Route: 065
  11. RAMIPRIL. [Concomitant]
     Active Substance: RAMIPRIL
     Dosage: UNK
     Route: 065
  12. TRUVADA [Suspect]
     Active Substance: EMTRICITABINE\TENOFOVIR DISOPROXIL FUMARATE
     Indication: HEPATITIS B
     Dosage: 245 MG, CYC
     Route: 065
  13. TENOFOVIR DISOPROXIL FUMARATE. [Suspect]
     Active Substance: TENOFOVIR DISOPROXIL FUMARATE
     Indication: HIV INFECTION
     Dosage: 245 MG, QD
     Route: 065
     Dates: start: 201505
  14. ZIDOVUDINE. [Concomitant]
     Active Substance: ZIDOVUDINE
     Dosage: 300 MG, QD
     Route: 065

REACTIONS (11)
  - Renal failure [Unknown]
  - Pathogen resistance [Unknown]
  - Secondary hypertension [Unknown]
  - End stage renal disease [Unknown]
  - Treatment noncompliance [Unknown]
  - Drug resistance [Unknown]
  - Virologic failure [Unknown]
  - Renal impairment [Unknown]
  - Viral mutation identified [Unknown]
  - Prescribed overdose [Unknown]
  - Drug ineffective [Unknown]

NARRATIVE: CASE EVENT DATE: 2014
